FAERS Safety Report 8034603-2 (Version None)
Quarter: 2012Q1

REPORT INFORMATION
  Report Type: 
  Country: None (occurrence: None)
  Receive Date: 20120110
  Receipt Date: 20120104
  Transmission Date: 20120608
  Serious: Yes (Other)
  Sender: FDA-Public Use
  Company Number: US-RB-029924-11

PATIENT
  Sex: Female

DRUGS (4)
  1. BUPRENORPHINE [Suspect]
     Indication: DRUG DEPENDENCE
     Route: 060
     Dates: start: 20110701, end: 20111009
  2. SUBOXONE [Suspect]
     Route: 060
     Dates: start: 20110222, end: 20110401
  3. SUBOXONE [Suspect]
     Indication: DRUG DEPENDENCE
     Route: 060
     Dates: start: 20110401, end: 20110501
  4. SUBOXONE [Suspect]
     Route: 060
     Dates: start: 20110501, end: 20110623

REACTIONS (6)
  - UNDERDOSE [None]
  - ASTHENIA [None]
  - MATERNAL EXPOSURE DURING PREGNANCY [None]
  - DRUG WITHDRAWAL SYNDROME [None]
  - GESTATIONAL HYPERTENSION [None]
  - DECREASED APPETITE [None]
